FAERS Safety Report 19138900 (Version 1)
Quarter: 2021Q2

REPORT INFORMATION
  Report Type: Spontaneous
  Country: DE (occurrence: DE)
  Receive Date: 20210415
  Receipt Date: 20210415
  Transmission Date: 20210717
  Serious: Yes (Other)
  Sender: FDA-Public Use
  Company Number: DE-TEVA-2021-DE-1900671

PATIENT
  Age: 61 Year
  Sex: Female

DRUGS (4)
  1. ESCITALOPRAM?RATIOPHARM 10MG FILMTABLETTEN [Suspect]
     Active Substance: ESCITALOPRAM OXALATE
     Dosage: 10 MILLIGRAM DAILY;
     Route: 048
     Dates: start: 2014
  2. ROSUVASTATIN/EZETIMIB [Concomitant]
     Dosage: 1 DF CONTAINS: ROSUVASTATIN/EZETIMIBE
     Route: 048
  3. CANDESARTAN. [Concomitant]
     Active Substance: CANDESARTAN
     Route: 048
  4. L?THYROXIN [Concomitant]
     Active Substance: LEVOTHYROXINE SODIUM
     Route: 048

REACTIONS (2)
  - Blood corticotrophin decreased [Not Recovered/Not Resolved]
  - Fear of disease [Unknown]
